FAERS Safety Report 11543525 (Version 2)
Quarter: 2015Q4

REPORT INFORMATION
  Report Type: Spontaneous
  Country: US (occurrence: US)
  Receive Date: 20150923
  Receipt Date: 20151223
  Transmission Date: 20160304
  Serious: No
  Sender: FDA-Public Use
  Company Number: US-009507513-1509USA006863

PATIENT
  Age: 20 Year
  Sex: Female
  Weight: 49.43 kg

DRUGS (1)
  1. NEXPLANON [Suspect]
     Active Substance: ETONOGESTREL
     Dosage: STRENGTH: 68 MG 1 STANDARD PACKAGE PREFLAPP OF 1
     Route: 059
     Dates: start: 20150902, end: 20150902

REACTIONS (2)
  - Product quality issue [Unknown]
  - Device difficult to use [Recovered/Resolved]

NARRATIVE: CASE EVENT DATE: 20150902
